FAERS Safety Report 5440679-9 (Version None)
Quarter: 2007Q3

REPORT INFORMATION
  Report Type: 
  Country: None (occurrence: None)
  Receive Date: 20070831
  Receipt Date: 20070814
  Transmission Date: 20080115
  Serious: No
  Sender: FDA-Public Use
  Company Number: US-BOEHRINGER INGELHEIM PHARMACEUTICALS, INC.-2007-BP-19198BP

PATIENT
  Age: 84 Year
  Sex: Female

DRUGS (2)
  1. ZANTAC 75 [Suspect]
     Route: 048
     Dates: start: 20070812
  2. AMITIZA [Concomitant]
     Indication: CONSTIPATION
     Route: 048
     Dates: start: 20070811

REACTIONS (1)
  - PAIN IN EXTREMITY [None]
